FAERS Safety Report 9966720 (Version 1)
Quarter: 2014Q1

REPORT INFORMATION
  Report Type: Report from Study
  Country: US (occurrence: US)
  Receive Date: 20140305
  Receipt Date: 20140305
  Transmission Date: 20141002
  Serious: No
  Sender: FDA-Public Use
  Company Number: US-ABBVIE-13P-163-1122690-00

PATIENT
  Age: 29 Year
  Sex: Female

DRUGS (7)
  1. HUMIRA [Suspect]
     Indication: CROHN^S DISEASE
     Dates: start: 20130626, end: 20130626
  2. HUMIRA [Suspect]
     Dates: start: 20130713
  3. PENTASA [Concomitant]
     Indication: CROHN^S DISEASE
  4. CIPRO [Concomitant]
     Indication: FISTULA
  5. CIPRO [Concomitant]
     Indication: ABSCESS
  6. FLAGYL [Concomitant]
     Indication: FISTULA
  7. FLAGYL [Concomitant]
     Indication: ABSCESS

REACTIONS (1)
  - Injection site bruising [Recovering/Resolving]
